FAERS Safety Report 15452186 (Version 1)
Quarter: 2018Q3

REPORT INFORMATION
  Report Type: Spontaneous
  Country: US (occurrence: US)
  Receive Date: 20180927
  Receipt Date: 20180927
  Transmission Date: 20181010
  Serious: Yes (Other)
  Sender: FDA-Public Use
  Company Number: None

PATIENT
  Age: 65 Year
  Sex: Female
  Weight: 79.83 kg

DRUGS (16)
  1. ESTRADIOL. [Concomitant]
     Active Substance: ESTRADIOL
  2. WOMEN^S MULTIVITAMIN [Concomitant]
  3. PROVERA [Concomitant]
     Active Substance: MEDROXYPROGESTERONE ACETATE
  4. ALPRAZOLAM. [Concomitant]
     Active Substance: ALPRAZOLAM
  5. MISOPROSTOL. [Concomitant]
     Active Substance: MISOPROSTOL
  6. TOPAMAX [Concomitant]
     Active Substance: TOPIRAMATE
  7. CHAPSTICK CLASSIC ORIGINAL [Suspect]
     Active Substance: PETROLATUM
  8. HYDROCODONE/ACETAMINOPHEN 10?325 TB [Suspect]
     Active Substance: ACETAMINOPHEN\HYDROCODONE BITARTRATE
     Indication: PAIN
     Route: 048
     Dates: start: 20180814, end: 20180820
  9. FLUTICASONE. [Concomitant]
     Active Substance: FLUTICASONE
  10. SENEKOT [Concomitant]
  11. ALBUTEROL SULFATE. [Concomitant]
     Active Substance: ALBUTEROL SULFATE
  12. CUREL SKIN LOTION [Concomitant]
  13. LEVOTHYROXINE. [Concomitant]
     Active Substance: LEVOTHYROXINE
  14. HYDROCODONE [Concomitant]
     Active Substance: HYDROCODONE
  15. PANTOPRAZOLE [Concomitant]
     Active Substance: PANTOPRAZOLE
  16. FLURORACIL [Concomitant]

REACTIONS (10)
  - Lung disorder [None]
  - Dry skin [None]
  - Drug ineffective [None]
  - Dry throat [None]
  - Asthma [None]
  - Product quality issue [None]
  - Dysphagia [None]
  - Paranasal sinus hyposecretion [None]
  - Dry mouth [None]
  - Tooth disorder [None]
